FAERS Safety Report 5857371-9 (Version None)
Quarter: 2008Q3

REPORT INFORMATION
  Report Type: 
  Country: None (occurrence: None)
  Receive Date: 20080825
  Receipt Date: 20080825
  Transmission Date: 20090109
  Serious: No
  Sender: FDA-Public Use
  Company Number: None

PATIENT
  Age: 72 Year
  Sex: Female

DRUGS (17)
  1. MACRODANTIN [Suspect]
     Dates: start: 20070607, end: 20070731
  2. FLUOXETINE [Concomitant]
  3. AMITRIPTYLINE HCL [Concomitant]
  4. NAPROXEN [Concomitant]
  5. MILK THISTLE [Concomitant]
  6. ASPIRIN [Concomitant]
  7. ACETAMINOPHEN [Concomitant]
  8. QVAR 40 [Concomitant]
  9. BUPROPION HCL [Concomitant]
  10. LOVASTATIN [Concomitant]
  11. ESTRACE [Concomitant]
  12. ALBUTEROL [Concomitant]
  13. NYSTATIN [Concomitant]
  14. PREMARIN [Concomitant]
  15. ADVIL LIQUI-GELS [Concomitant]
  16. MOTRIN [Concomitant]
  17. M.V.I. [Concomitant]

REACTIONS (5)
  - HEPATIC NECROSIS [None]
  - HEPATIC STEATOSIS [None]
  - HYPERLIPIDAEMIA [None]
  - LIVER INJURY [None]
  - WEIGHT INCREASED [None]
